FAERS Safety Report 22385371 (Version 1)
Quarter: 2023Q2

REPORT INFORMATION
  Report Type: Spontaneous
  Country: CN (occurrence: CN)
  Receive Date: 20230530
  Receipt Date: 20230530
  Transmission Date: 20230722
  Serious: Yes (Other)
  Sender: FDA-Public Use
  Company Number: CN-009507513-2305CHN008726

PATIENT
  Age: 55 Year
  Sex: Male

DRUGS (2)
  1. PEMBROLIZUMAB [Suspect]
     Active Substance: PEMBROLIZUMAB
     Indication: Cholangiocarcinoma
     Dosage: 200 MILLIGRAM, Q3W
     Route: 042
     Dates: start: 2020
  2. LENVATINIB MESYLATE [Suspect]
     Active Substance: LENVATINIB MESYLATE
     Indication: Cholangiocarcinoma
     Dosage: 8 MILLIGRAM, QD
     Route: 048
     Dates: start: 2020

REACTIONS (2)
  - Pulmonary arterial hypertension [Unknown]
  - Product use in unapproved indication [Unknown]

NARRATIVE: CASE EVENT DATE: 20200101
